FAERS Safety Report 20046034 (Version 1)
Quarter: 2021Q4

REPORT INFORMATION
  Report Type: Spontaneous
  Country: US (occurrence: None)
  Receive Date: 20211108
  Receipt Date: 20211108
  Transmission Date: 20220303
  Serious: Yes (Life-Threatening)
  Sender: FDA-Public Use
  Company Number: None

PATIENT
  Age: 80 Year
  Sex: Male
  Weight: 68.4 kg

DRUGS (19)
  1. BARICITINIB [Suspect]
     Active Substance: BARICITINIB
     Indication: COVID-19
     Dosage: FREQUENCY : DAILY;?
     Route: 048
     Dates: start: 20211028, end: 20211101
  2. REMDESIVIR [Concomitant]
     Active Substance: REMDESIVIR
     Dates: start: 20211027, end: 20211031
  3. ACETAMINOPHEN [Concomitant]
     Active Substance: ACETAMINOPHEN
     Dates: start: 20211028, end: 20211102
  4. ALBUTEROL [Concomitant]
     Active Substance: ALBUTEROL
     Dates: start: 20211028, end: 20211104
  5. ELIQUIS [Concomitant]
     Active Substance: APIXABAN
     Dates: start: 20211027, end: 20211031
  6. ASPIRIN [Concomitant]
     Active Substance: ASPIRIN
     Dates: start: 20211027, end: 20211104
  7. DEXAMETHASONE [Concomitant]
     Active Substance: DEXAMETHASONE
     Dates: start: 20211028, end: 20211104
  8. BENADRYL [Concomitant]
     Active Substance: DIPHENHYDRAMINE HYDROCHLORIDE
     Dates: start: 20211028, end: 20211031
  9. HUMALOG [Concomitant]
     Active Substance: INSULIN LISPRO
     Dates: start: 20211029, end: 20211103
  10. MELATONIN [Concomitant]
     Active Substance: MELATONIN
     Dates: start: 20211027, end: 20211103
  11. NALOXEGOL [Concomitant]
     Active Substance: NALOXEGOL
     Dates: start: 20211028, end: 20211031
  12. NYSTATIN [Concomitant]
     Active Substance: NYSTATIN
     Dates: start: 20211029, end: 20211103
  13. PROTONIX [Concomitant]
     Active Substance: PANTOPRAZOLE SODIUM
     Dates: start: 20211028, end: 20211104
  14. ZOSYN [Concomitant]
     Active Substance: PIPERACILLIN SODIUM\TAZOBACTAM SODIUM
     Dates: start: 20211029, end: 20211104
  15. SIMVASTATIN [Concomitant]
     Active Substance: SIMVASTATIN
     Dates: start: 20211027, end: 20211103
  16. TRAMADOL [Concomitant]
     Active Substance: TRAMADOL
     Dates: start: 20211027, end: 20211102
  17. VANCOMYCIN [Concomitant]
     Active Substance: VANCOMYCIN
     Dates: start: 20211029, end: 20211102
  18. MUPIROCIN [Concomitant]
     Active Substance: MUPIROCIN
     Dates: start: 20211028, end: 20211101
  19. COLACE [Concomitant]
     Active Substance: DOCUSATE SODIUM
     Dates: start: 20211027, end: 20211030

REACTIONS (5)
  - Acute kidney injury [None]
  - Acute respiratory failure [None]
  - COVID-19 pneumonia [None]
  - Peripheral artery thrombosis [None]
  - Gastrointestinal haemorrhage [None]

NARRATIVE: CASE EVENT DATE: 20211101
